FAERS Safety Report 19182140 (Version 4)
Quarter: 2021Q2

REPORT INFORMATION
  Report Type: Report from Study
  Country: CL (occurrence: CL)
  Receive Date: 20210426
  Receipt Date: 20210615
  Transmission Date: 20210717
  Serious: Yes (Hospitalization, Other)
  Sender: FDA-Public Use
  Company Number: CL-BRISTOL-MYERS SQUIBB COMPANY-BMS-2021-016293

PATIENT
  Age: 54 Year
  Sex: Male
  Weight: 79 kg

DRUGS (21)
  1. BMS?986249?01 [Suspect]
     Active Substance: BMS-986249
     Indication: MALIGNANT MELANOMA
     Dosage: 1200 MILLIGRAM
     Route: 065
     Dates: start: 20210106
  2. PREDNISONE. [Concomitant]
     Active Substance: PREDNISONE
     Indication: DIARRHOEA
     Dosage: 80 MILLIGRAM
     Route: 042
     Dates: start: 20210125
  3. PHYSIOLOGICAL SALINE SOLUTION [Concomitant]
     Active Substance: SODIUM CHLORIDE
     Indication: DIARRHOEA
     Dosage: 1 DOSAGE FORM
     Route: 042
     Dates: start: 20210118, end: 20210118
  4. TAMSULOSIN [Concomitant]
     Active Substance: TAMSULOSIN
     Indication: PRODUCT USED FOR UNKNOWN INDICATION
     Dosage: 0.4 MILLIGRAM
     Route: 048
     Dates: start: 2017
  5. PARGEVERINE [Concomitant]
     Active Substance: PARGEVERINE
     Dosage: 5 GRAM
     Route: 042
     Dates: start: 20210216, end: 20210216
  6. OMEPRAZOLE. [Concomitant]
     Active Substance: OMEPRAZOLE
     Indication: DIARRHOEA
     Dosage: 40 MILLIGRAM, QD
     Route: 042
     Dates: start: 20210118
  7. POTASSIUM CHLORIDE. [Concomitant]
     Active Substance: POTASSIUM CHLORIDE
     Dosage: 2 GRAM
     Route: 042
     Dates: start: 20210208, end: 20210208
  8. POTASSIUM CHLORIDE. [Concomitant]
     Active Substance: POTASSIUM CHLORIDE
     Dosage: 2 GRAM
     Route: 042
     Dates: start: 20210216, end: 20210216
  9. UREA. [Concomitant]
     Active Substance: UREA
     Indication: PRURITUS
     Dosage: 1 DOSAGE FORM
     Route: 061
     Dates: start: 20210113
  10. DESLORATADINE. [Concomitant]
     Active Substance: DESLORATADINE
     Indication: PRURITUS
     Dosage: 5 MILLIGRAM
     Route: 048
     Dates: start: 20210113
  11. LOPERAMIDE [Concomitant]
     Active Substance: LOPERAMIDE
     Indication: DIARRHOEA
     Dosage: 4 MILLIGRAM, QD
     Route: 048
     Dates: start: 20210118
  12. POTASSIUM CHLORIDE. [Concomitant]
     Active Substance: POTASSIUM CHLORIDE
     Indication: DIARRHOEA
     Dosage: 1 DOSAGE FORM
     Route: 042
     Dates: start: 20210125, end: 20210125
  13. VANCOMYCIN [Concomitant]
     Active Substance: VANCOMYCIN
     Indication: CLOSTRIDIUM DIFFICILE INFECTION
     Dosage: 125 MILLIGRAM
     Route: 048
     Dates: start: 20210208, end: 20210416
  14. NIVOLUMAB [Suspect]
     Active Substance: NIVOLUMAB
     Indication: MALIGNANT MELANOMA
     Dosage: 480 MILLIGRAM
     Route: 042
     Dates: start: 20210106
  15. PREDNISONE. [Concomitant]
     Active Substance: PREDNISONE
     Indication: AMYLASE INCREASED
     Dosage: 40 MILLIGRAM
     Route: 048
     Dates: start: 20210206, end: 20210415
  16. MAGNESIUM SULPHATE [MAGNESIUM SULFATE] [Concomitant]
     Active Substance: MAGNESIUM SULFATE
     Indication: DIARRHOEA
     Dosage: 1 DOSAGE FORM
     Route: 042
     Dates: start: 20210125, end: 20210125
  17. MAGNESIUM SULPHATE [MAGNESIUM SULFATE] [Concomitant]
     Active Substance: MAGNESIUM SULFATE
     Dosage: 1 GRAM
     Route: 042
     Dates: start: 20210216, end: 20210216
  18. METRONIDAZOLE. [Concomitant]
     Active Substance: METRONIDAZOLE
     Indication: CLOSTRIDIUM DIFFICILE INFECTION
     Dosage: 500 MILLIGRAM
     Route: 048
     Dates: start: 20210206, end: 20210416
  19. PARGEVERINE [Concomitant]
     Active Substance: PARGEVERINE
     Indication: ABDOMINAL PAIN
     Dosage: 1 DOSAGE FORM
     Route: 048
     Dates: start: 20210118
  20. LIDOCAINE. [Concomitant]
     Active Substance: LIDOCAINE
     Indication: DIARRHOEA
     Dosage: 1 DOSAGE FORM
     Route: 061
     Dates: start: 20210202, end: 20210416
  21. PHYSIOLOGICAL SALINE SOLUTION [Concomitant]
     Active Substance: SODIUM CHLORIDE
     Dosage: 1000 MILLILITER
     Route: 042
     Dates: start: 20210125, end: 20210125

REACTIONS (1)
  - Colitis ulcerative [Recovered/Resolved with Sequelae]

NARRATIVE: CASE EVENT DATE: 20210216
